FAERS Safety Report 5113526-2 (Version None)
Quarter: 2006Q3

REPORT INFORMATION
  Report Type: 
  Country: None (occurrence: None)
  Receive Date: 20060925
  Receipt Date: 20060918
  Transmission Date: 20061208
  Serious: Yes (Other)
  Sender: FDA-Public Use
  Company Number: PHEH2006US11858

PATIENT
  Age: 60 Year
  Sex: Male

DRUGS (4)
  1. DIOVAN [Suspect]
     Indication: HYPERTENSION
     Dosage: 160 MG, QD
     Dates: start: 20050901, end: 20060914
  2. DIOVAN [Suspect]
     Dosage: UNK, UNK
     Dates: end: 20050901
  3. LIPITOR [Concomitant]
     Dosage: UNK. UNK
     Dates: start: 20010101
  4. HERBAL EXTRACTS NOS [Concomitant]
     Dates: end: 20060601

REACTIONS (6)
  - BLOOD PRESSURE INADEQUATELY CONTROLLED [None]
  - BREAST MASS [None]
  - LYMPHOMA [None]
  - MASS [None]
  - METASTASIS [None]
  - RENAL CELL CARCINOMA STAGE UNSPECIFIED [None]
